FAERS Safety Report 6611138-2 (Version None)
Quarter: 2010Q1

REPORT INFORMATION
  Report Type: 
  Country: None (occurrence: None)
  Receive Date: 20100302
  Receipt Date: 20100302
  Transmission Date: 20100710
  Serious: No
  Sender: FDA-Public Use
  Company Number: None

PATIENT
  Sex: Female
  Weight: 52.1637 kg

DRUGS (2)
  1. BUPROPION HCL [Suspect]
     Indication: BIPOLAR DISORDER
     Dosage: 150MG IN THE MORNING
  2. BUPROPION HCL [Suspect]
     Indication: DEPRESSION
     Dosage: 150MG IN THE MORNING

REACTIONS (5)
  - ALOPECIA [None]
  - DEPRESSION [None]
  - PRODUCT SUBSTITUTION ISSUE [None]
  - PRURITUS [None]
  - TINNITUS [None]
